FAERS Safety Report 8107735-8 (Version None)
Quarter: 2012Q1

REPORT INFORMATION
  Report Type: 
  Country: None (occurrence: None)
  Receive Date: 20120202
  Receipt Date: 20120130
  Transmission Date: 20120608
  Serious: Yes (Other)
  Sender: FDA-Public Use
  Company Number: US-JNJFOC-20120113114

PATIENT
  Sex: Female
  Weight: 80.74 kg

DRUGS (4)
  1. TOPAMAX [Suspect]
     Indication: EPILEPSY
     Route: 048
  2. DILANTIN [Suspect]
     Indication: EPILEPSY
     Route: 048
     Dates: start: 20100101
  3. TOPAMAX [Suspect]
     Route: 048
     Dates: start: 20100101, end: 20100101
  4. DILANTIN [Suspect]
     Route: 048
     Dates: start: 20100101

REACTIONS (6)
  - HAEMANGIOMA [None]
  - EPILEPSY [None]
  - PARANOIA [None]
  - MALAISE [None]
  - EATING DISORDER [None]
  - RASH [None]
